FAERS Safety Report 5255819-4 (Version None)
Quarter: 2007Q1

REPORT INFORMATION
  Report Type: 
  Country: None (occurrence: None)
  Receive Date: 20070301
  Receipt Date: 20070214
  Transmission Date: 20070707
  Serious: Yes (Death, Life-Threatening)
  Sender: FDA-Public Use
  Company Number: 8022182

PATIENT
  Age: 52 Year
  Sex: Male

DRUGS (5)
  1. KEPPRA [Suspect]
     Indication: STATUS EPILEPTICUS
     Dosage: IV
     Route: 042
     Dates: start: 20061229
  2. PENTOTHAL [Suspect]
     Dosage: IV
     Route: 042
     Dates: start: 20061229, end: 20070112
  3. DEPAKENE [Suspect]
  4. RIVOTRIL [Suspect]
  5. FOSPHENYTOIN SODIUM [Suspect]

REACTIONS (3)
  - CONDITION AGGRAVATED [None]
  - CONVULSION [None]
  - STATUS EPILEPTICUS [None]
